FAERS Safety Report 6507975-5 (Version None)
Quarter: 2009Q4

REPORT INFORMATION
  Report Type: 
  Country: None (occurrence: None)
  Receive Date: 20091221
  Receipt Date: 20091218
  Transmission Date: 20100525
  Serious: Yes (Hospitalization)
  Sender: FDA-Public Use
  Company Number: Z0002674A

PATIENT
  Age: 61 Year

DRUGS (2)
  1. LAPATINIB [Suspect]
     Dosage: 1250MG PER DAY
     Route: 048
  2. PACLITAXEL [Suspect]
     Dosage: 100MGM2 CYCLIC
     Route: 042

REACTIONS (2)
  - DIARRHOEA [None]
  - NEUTROPENIA [None]
